FAERS Safety Report 5062366-1 (Version None)
Quarter: 2006Q3

REPORT INFORMATION
  Report Type: 
  Country: None (occurrence: None)
  Receive Date: 20060726
  Receipt Date: 20060718
  Transmission Date: 20061208
  Serious: Yes (Congenital Anomaly)
  Sender: FDA-Public Use
  Company Number: FR-GLAXOSMITHKLINE-B0409922B

PATIENT

DRUGS (2)
  1. AVANDIA [Suspect]
     Dosage: 4MG PER DAY
  2. LEVOTHYROXINE SODIUM [Concomitant]
     Dosage: 25MG PER DAY

REACTIONS (3)
  - DRUG EXPOSURE DURING PREGNANCY [None]
  - MULTIPLE CONGENITAL ABNORMALITIES [None]
  - TOE DEFORMITY [None]
